FAERS Safety Report 8435303-7 (Version None)
Quarter: 2012Q2

REPORT INFORMATION
  Report Type: 
  Country: None (occurrence: None)
  Receive Date: 20120608
  Receipt Date: 20120608
  Transmission Date: 20120825
  Serious: Yes (Life-Threatening, Hospitalization, Other)
  Sender: FDA-Public Use
  Company Number: None

PATIENT
  Age: 21 Year
  Sex: Male
  Weight: 72.5755 kg

DRUGS (1)
  1. MIRALAX [Suspect]
     Indication: GASTROINTESTINAL DISORDER
     Dosage: 17G ONCE DAILY PO
     Route: 048
     Dates: start: 20050915

REACTIONS (7)
  - CONVULSION [None]
  - SKULL FRACTURE [None]
  - HAEMATOMA [None]
  - NEUROPSYCHIATRIC SYNDROME [None]
  - LOSS OF CONSCIOUSNESS [None]
  - CEREBRAL HAEMORRHAGE [None]
  - FALL [None]
